FAERS Safety Report 5987405-2 (Version None)
Quarter: 2008Q4

REPORT INFORMATION
  Report Type: 
  Country: None (occurrence: None)
  Receive Date: 20081209
  Receipt Date: 20081204
  Transmission Date: 20090506
  Serious: Yes (Death)
  Sender: FDA-Public Use
  Company Number: RS-ABBOTT-08P-303-0491019-00

PATIENT
  Age: 55 Year
  Sex: Male
  Weight: 85 kg

DRUGS (15)
  1. SEVORANE LIQUID FOR INHALATION [Suspect]
     Indication: ANAESTHESIA
     Route: 055
     Dates: start: 20080617, end: 20080617
  2. SEVORANE LIQUID FOR INHALATION [Suspect]
     Indication: CORONARY REVASCULARISATION
  3. SIMVASTATIN [Suspect]
     Indication: HYPERCHOLESTEROLAEMIA
  4. HEPARIN [Suspect]
     Indication: EXTRACORPOREAL CIRCULATION
  5. MIDAZOLAM HCL [Concomitant]
     Indication: DRUG USE FOR UNKNOWN INDICATION
  6. SUFENTANYL [Concomitant]
     Indication: DRUG USE FOR UNKNOWN INDICATION
  7. ETOMIDATE [Concomitant]
     Indication: DRUG USE FOR UNKNOWN INDICATION
  8. CEFUROXIME SODIUM [Concomitant]
     Indication: DRUG USE FOR UNKNOWN INDICATION
  9. BUMETAMID [Concomitant]
     Indication: DRUG USE FOR UNKNOWN INDICATION
  10. GLICERYL TRINITRATE [Concomitant]
     Indication: DRUG USE FOR UNKNOWN INDICATION
  11. DOPAMINE HCL [Concomitant]
     Indication: DRUG USE FOR UNKNOWN INDICATION
  12. LIDOCAINE [Concomitant]
     Indication: DRUG USE FOR UNKNOWN INDICATION
  13. CARVEDILOL [Concomitant]
     Indication: DRUG USE FOR UNKNOWN INDICATION
  14. RAMIPRIL [Concomitant]
     Indication: DRUG USE FOR UNKNOWN INDICATION
  15. ASPIRIN [Concomitant]
     Indication: DRUG USE FOR UNKNOWN INDICATION

REACTIONS (4)
  - HEPATIC NECROSIS [None]
  - HEPATORENAL SYNDROME [None]
  - RENAL FAILURE ACUTE [None]
  - RHABDOMYOLYSIS [None]
